FAERS Safety Report 6788793-X (Version None)
Quarter: 2010Q2

REPORT INFORMATION
  Report Type: 
  Country: None (occurrence: None)
  Receive Date: 20100623
  Receipt Date: 20080627
  Transmission Date: 20101027
  Serious: Yes (Other)
  Sender: FDA-Public Use
  Company Number: US-PFIZER INC-2008031207

PATIENT
  Sex: Male
  Weight: 90.7 kg

DRUGS (5)
  1. GEODON [Suspect]
     Indication: OBSESSIVE-COMPULSIVE DISORDER
     Route: 048
     Dates: start: 20071001
  2. PROZAC [Concomitant]
     Route: 048
  3. MULTI-VITAMINS [Concomitant]
     Route: 048
  4. ALL OTHER THERAPEUTIC PRODUCTS [Concomitant]
     Route: 048
  5. ANTIHISTAMINES [Concomitant]
     Route: 048

REACTIONS (4)
  - DYSKINESIA [None]
  - DYSPHAGIA [None]
  - TARDIVE DYSKINESIA [None]
  - WEIGHT DECREASED [None]
